FAERS Safety Report 5044501-4 (Version None)
Quarter: 2006Q3

REPORT INFORMATION
  Report Type: 
  Country: None (occurrence: None)
  Receive Date: 20060706
  Receipt Date: 20060629
  Transmission Date: 20061208
  Serious: Yes (Life-Threatening)
  Sender: FDA-Public Use
  Company Number: 20006094

PATIENT
  Age: 72 Year
  Sex: Male
  Weight: 81.5 kg

DRUGS (4)
  1. ROPINIROLE [Suspect]
     Indication: RESTLESS LEGS SYNDROME
     Dosage: 1MG PER DAY
     Route: 048
     Dates: start: 20060522, end: 20060601
  2. ASPIRIN [Concomitant]
     Route: 048
     Dates: start: 20060509
  3. DIPYRIDAMOLE [Concomitant]
     Route: 048
     Dates: start: 20060509
  4. LANSOPRAZOLE [Concomitant]
     Indication: BARRETT'S OESOPHAGUS
     Route: 048
     Dates: start: 20030915

REACTIONS (2)
  - BRADYCARDIA [None]
  - RESPIRATORY ARREST [None]
